FAERS Safety Report 5378467-4 (Version None)
Quarter: 2007Q3

REPORT INFORMATION
  Report Type: 
  Country: None (occurrence: None)
  Receive Date: 20070705
  Receipt Date: 20070628
  Transmission Date: 20080115
  Serious: Yes (Life-Threatening)
  Sender: FDA-Public Use
  Company Number: AU-AVENTIS-200715370GDDC

PATIENT
  Age: 75 Year
  Sex: Male

DRUGS (16)
  1. ARAVA [Suspect]
     Indication: RHEUMATOID ARTHRITIS
     Route: 048
     Dates: start: 20031201
  2. METHOTREXATE [Concomitant]
     Dosage: DOSE: UNK
  3. FOLIC ACID [Concomitant]
     Dosage: DOSE: UNK
  4. PREDNISOLONE [Concomitant]
     Dosage: DOSE: UNK
  5. BISPROLOL [Concomitant]
     Dosage: DOSE: UNK
  6. COVERSYL                           /00790701/ [Concomitant]
     Dosage: DOSE: UNK
  7. LIPITOR [Concomitant]
     Dosage: DOSE: UNK
  8. ASTRIX [Concomitant]
     Dosage: DOSE: UNK
  9. PLAVIX [Concomitant]
     Dosage: DOSE: UNK
  10. DURIDE                             /00586303/ [Concomitant]
     Dosage: DOSE: UNK
  11. LASIX [Concomitant]
     Dosage: DOSE: UNK
  12. SPIRACTIN                          /00536902/ [Concomitant]
     Dosage: DOSE: UNK
  13. ACTONEL COMBI [Concomitant]
     Dosage: DOSE: UNK
  14. TIMOLOL EYE DROPS [Concomitant]
     Indication: GLAUCOMA
     Dosage: DOSE: UNK
  15. XALATAN [Concomitant]
     Indication: GLAUCOMA
     Dosage: DOSE: UNK
  16. NEXIUM [Concomitant]
     Dosage: DOSE: UNK

REACTIONS (1)
  - MYOCARDIAL INFARCTION [None]
